FAERS Safety Report 19582761 (Version 2)
Quarter: 2021Q3

REPORT INFORMATION
  Report Type: Report from Study
  Country: AT (occurrence: AT)
  Receive Date: 20210720
  Receipt Date: 20210726
  Transmission Date: 20211014
  Serious: Yes (Death)
  Sender: FDA-Public Use
  Company Number: AT-PFIZER INC-2021857872

PATIENT

DRUGS (15)
  1. ZOFRAN [Concomitant]
     Active Substance: ONDANSETRON HYDROCHLORIDE
     Dates: start: 20190306, end: 20190707
  2. PANTOLOC [PANTOPRAZOLE] [Concomitant]
     Active Substance: PANTOPRAZOLE SODIUM
     Dates: start: 20190306, end: 20190707
  3. DIBONDRIN [Concomitant]
     Active Substance: DIPHENHYDRAMINE HYDROCHLORIDE
     Dates: start: 20190306, end: 20190707
  4. ZOFRAN [Concomitant]
     Active Substance: ONDANSETRON HYDROCHLORIDE
     Dosage: UNK
     Dates: start: 20190306
  5. ZOFRAN [Concomitant]
     Active Substance: ONDANSETRON HYDROCHLORIDE
     Dates: start: 20190306, end: 20190707
  6. EMEND [Concomitant]
     Active Substance: APREPITANT
     Dates: start: 20190306, end: 20190707
  7. TRASTUZUMAB. [Suspect]
     Active Substance: TRASTUZUMAB
     Dosage: 1040 MG, EVERY 3 WEEKS
     Route: 042
     Dates: start: 20190306, end: 20190619
  8. FORLAX [Concomitant]
     Active Substance: POLYETHYLENE GLYCOL 4000
     Dates: start: 20190306, end: 20190707
  9. DOCETAXEL. [Suspect]
     Active Substance: DOCETAXEL
     Indication: HER2 POSITIVE BREAST CANCER
     Dosage: 127 MG, EVERY 3 WEEKS
     Route: 042
     Dates: start: 20190306, end: 20190528
  10. MEXALEN [Concomitant]
     Active Substance: ACETAMINOPHEN
     Dates: start: 20190306, end: 20190707
  11. FORTECORTIN [Concomitant]
     Active Substance: DEXAMETHASONE
     Dosage: UNK
     Dates: start: 20190306
  12. DAFLON [Concomitant]
     Dates: end: 20190707
  13. PERTUZUMAB. [Suspect]
     Active Substance: PERTUZUMAB
     Indication: HER2 POSITIVE BREAST CANCER
     Dosage: 840 MG, EVERY 3 WEEKS
     Route: 042
     Dates: start: 20190306, end: 20190619
  14. FORTECORTIN [Concomitant]
     Active Substance: DEXAMETHASONE
     Dates: start: 20190306, end: 20190707
  15. ENALAPRIL/HCT [Concomitant]
     Active Substance: ENALAPRIL\HYDROCHLOROTHIAZIDE
     Dates: end: 20190707

REACTIONS (2)
  - Pneumonia [Fatal]
  - Device related infection [Fatal]

NARRATIVE: CASE EVENT DATE: 20190628
